FAERS Safety Report 24933231 (Version 1)
Quarter: 2025Q1

REPORT INFORMATION
  Report Type: Spontaneous
  Country: US (occurrence: US)
  Receive Date: 20250206
  Receipt Date: 20250206
  Transmission Date: 20250409
  Serious: No
  Sender: ALKEM
  Company Number: US-ALKEM LABORATORIES LIMITED-US-ALKEM-2024-18383

PATIENT
  Age: 76 Year
  Sex: Male

DRUGS (2)
  1. GABAPENTIN [Suspect]
     Active Substance: GABAPENTIN
     Indication: Product used for unknown indication
     Dosage: 300 MILLIGRAM, TID
     Route: 065
  2. GABAPENTIN [Suspect]
     Active Substance: GABAPENTIN
     Dosage: 100 MILLIGRAM, TID (DOSE DECRESED)
     Route: 065

REACTIONS (5)
  - Myoclonus [Unknown]
  - Confusional state [Unknown]
  - Dyskinesia [Unknown]
  - Asthenia [Unknown]
  - Tremor [Recovering/Resolving]
